FAERS Safety Report 13783896 (Version 1)
Quarter: 2017Q3

REPORT INFORMATION
  Report Type: Spontaneous
  Country: US (occurrence: US)
  Receive Date: 20170724
  Receipt Date: 20170724
  Transmission Date: 20171127
  Serious: Yes (Life-Threatening, Other)
  Sender: FDA-Public Use
  Company Number: PHHY2017US105024

PATIENT
  Age: 17 Year
  Sex: Male

DRUGS (2)
  1. OLANZAPINE. [Suspect]
     Active Substance: OLANZAPINE
     Indication: PRODUCT USED FOR UNKNOWN INDICATION
     Route: 065
  2. CHLORPROMAZINE. [Suspect]
     Active Substance: CHLORPROMAZINE
     Indication: PRODUCT USED FOR UNKNOWN INDICATION
     Route: 065

REACTIONS (9)
  - Posturing [Unknown]
  - Condition aggravated [Unknown]
  - Hypophagia [Unknown]
  - Grimacing [Unknown]
  - Neuroleptic malignant syndrome [Unknown]
  - Catatonia [Unknown]
  - Urine output decreased [Unknown]
  - Drooling [Unknown]
  - Staring [Unknown]
